FAERS Safety Report 7149251-6 (Version None)
Quarter: 2010Q4

REPORT INFORMATION
  Report Type: 
  Country: None (occurrence: None)
  Receive Date: 20101209
  Receipt Date: 20101129
  Transmission Date: 20110411
  Serious: Yes (Hospitalization)
  Sender: FDA-Public Use
  Company Number: GXKR2010TW13507

PATIENT
  Age: 46 Year
  Sex: Female

DRUGS (1)
  1. ORPHENADRINE (NGX) [Suspect]
     Dosage: 40 DF, ONCE/SINGLE
     Route: 065

REACTIONS (9)
  - ARTHRALGIA [None]
  - CONVULSION [None]
  - DRY SKIN [None]
  - INTENTIONAL OVERDOSE [None]
  - JOINT DISLOCATION [None]
  - JOINT SPRAIN [None]
  - LOSS OF CONSCIOUSNESS [None]
  - NAUSEA [None]
  - RHABDOMYOLYSIS [None]
